FAERS Safety Report 10180021 (Version 1)
Quarter: 2014Q2

REPORT INFORMATION
  Report Type: Spontaneous
  Country: US (occurrence: US)
  Receive Date: 20140519
  Receipt Date: 20140519
  Transmission Date: 20141212
  Serious: No
  Sender: FDA-Public Use
  Company Number: US-BRISTOL-MYERS SQUIBB COMPANY-20545182

PATIENT
  Age: 80 Year
  Sex: Female

DRUGS (7)
  1. BARACLUDE [Suspect]
     Route: 048
  2. GABAPENTIN [Concomitant]
  3. CARBAMAZEPINE [Concomitant]
  4. ATORVASTATIN [Concomitant]
  5. AMLODIPINE BESYLATE [Concomitant]
  6. METFORMIN [Concomitant]
  7. CARVEDILOL [Concomitant]

REACTIONS (1)
  - Headache [Unknown]
